FAERS Safety Report 5934503-5 (Version None)
Quarter: 2008Q4

REPORT INFORMATION
  Report Type: 
  Country: None (occurrence: None)
  Receive Date: 20081029
  Receipt Date: 20081016
  Transmission Date: 20090506
  Serious: Yes (Death)
  Sender: FDA-Public Use
  Company Number: IT-ELI_LILLY_AND_COMPANY-IT200810003835

PATIENT
  Sex: Female

DRUGS (3)
  1. CYMBALTA [Suspect]
     Indication: DYSTHYMIC DISORDER
     Dosage: 60 MG, DAILY (1/D)
     Route: 064
  2. LEXOTAN [Concomitant]
     Dosage: 10 - 20 DROPS AS NEEDED
     Route: 064
  3. PAROXETINE HYDROCHLORIDE [Concomitant]
     Indication: DYSTHYMIC DISORDER
     Dosage: 10 MG, DAILY (1/D)
     Route: 064
     Dates: start: 20071011

REACTIONS (2)
  - DRUG EXPOSURE DURING PREGNANCY [None]
  - STILLBIRTH [None]
